FAERS Safety Report 16596304 (Version 1)
Quarter: 2019Q3

REPORT INFORMATION
  Report Type: Report from Study
  Country: US (occurrence: US)
  Receive Date: 20190719
  Receipt Date: 20190719
  Transmission Date: 20191004
  Serious: Yes (Life-Threatening, Hospitalization, Other)
  Sender: FDA-Public Use
  Company Number: PHEH2019US029951

PATIENT
  Sex: Male

DRUGS (1)
  1. ENTRESTO [Suspect]
     Active Substance: SACUBITRIL\VALSARTAN
     Indication: CARDIAC FAILURE CONGESTIVE
     Route: 048

REACTIONS (6)
  - Blood glucose increased [Unknown]
  - Apparent death [Unknown]
  - Myocardial infarction [Unknown]
  - Renal disorder [Unknown]
  - Overweight [Unknown]
  - Pleural effusion [Unknown]
